FAERS Safety Report 4778405-9 (Version None)
Quarter: 2005Q3

REPORT INFORMATION
  Report Type: 
  Country: None (occurrence: None)
  Receive Date: 20050926
  Receipt Date: 20050913
  Transmission Date: 20060218
  Serious: Yes (Hospitalization)
  Sender: FDA-Public Use
  Company Number: FR-JNJFOC-20050905212

PATIENT
  Age: 72 Year
  Sex: Male

DRUGS (2)
  1. TOPALGIC [Suspect]
     Indication: DRUG USE FOR UNKNOWN INDICATION
     Route: 042
  2. VANCOMYCIN [Suspect]
     Indication: DRUG USE FOR UNKNOWN INDICATION
     Route: 042

REACTIONS (10)
  - DERMATITIS EXFOLIATIVE [None]
  - EOSINOPHILIA [None]
  - FACE OEDEMA [None]
  - HYPERSENSITIVITY [None]
  - LYMPHOMA [None]
  - LYMPHOPENIA [None]
  - PYREXIA [None]
  - RASH MACULO-PAPULAR [None]
  - RASH PRURITIC [None]
  - TUBERCULOSIS [None]
